FAERS Safety Report 6752015-6 (Version None)
Quarter: 2010Q2

REPORT INFORMATION
  Report Type: 
  Country: None (occurrence: None)
  Receive Date: 20100602
  Receipt Date: 20100518
  Transmission Date: 20101027
  Serious: Yes (Hospitalization)
  Sender: FDA-Public Use
  Company Number: GB-MERCK-1005GBR00026

PATIENT
  Sex: Female

DRUGS (4)
  1. COZAAR [Suspect]
     Indication: HYPERTENSION
     Route: 048
     Dates: start: 20000101, end: 20100401
  2. COZAAR [Suspect]
     Route: 048
     Dates: start: 20100401, end: 20100401
  3. COZAAR [Suspect]
     Route: 048
     Dates: start: 20100401, end: 20100510
  4. COZAAR [Suspect]
     Route: 048
     Dates: start: 20100510, end: 20100510

REACTIONS (7)
  - DRUG ADMINISTRATION ERROR [None]
  - DRUG INEFFECTIVE [None]
  - DRY THROAT [None]
  - DYSPEPSIA [None]
  - MUSCULAR WEAKNESS [None]
  - PARAESTHESIA [None]
  - SYNCOPE [None]
